FAERS Safety Report 7161791-2 (Version None)
Quarter: 2010Q4

REPORT INFORMATION
  Report Type: 
  Country: None (occurrence: None)
  Receive Date: 20101215
  Receipt Date: 20101208
  Transmission Date: 20110411
  Serious: Yes (Hospitalization)
  Sender: FDA-Public Use
  Company Number: US-GILEAD-2010-0033828

PATIENT
  Sex: Female
  Weight: 60 kg

DRUGS (10)
  1. LETAIRIS [Suspect]
     Indication: PULMONARY ARTERIAL HYPERTENSION
     Route: 048
     Dates: start: 20101027, end: 20101115
  2. REVATIO [Concomitant]
     Indication: PULMONARY ARTERIAL HYPERTENSION
  3. ASPIRIN [Concomitant]
     Indication: CORONARY ARTERY DISEASE
  4. AMLODIPINE [Concomitant]
     Indication: HYPERTENSION
  5. AVAPRO [Concomitant]
     Indication: HYPERTENSION
  6. DIGOXIN [Concomitant]
     Indication: PULMONARY ARTERIAL HYPERTENSION
  7. TRAZODONE [Concomitant]
     Indication: INSOMNIA
  8. ALPRAZOLAM [Concomitant]
     Indication: ANXIETY
  9. FLOVENT [Concomitant]
     Indication: ASTHMA
  10. METOPROLOL [Concomitant]
     Indication: CORONARY ARTERY DISEASE

REACTIONS (1)
  - HYPOXIA [None]
